FAERS Safety Report 5005997-7 (Version None)
Quarter: 2006Q2

REPORT INFORMATION
  Report Type: 
  Country: None (occurrence: None)
  Receive Date: 20060516
  Receipt Date: 20060505
  Transmission Date: 20061013
  Serious: Yes (Hospitalization, Other)
  Sender: FDA-Public Use
  Company Number: HQWYE210708MAY06

PATIENT
  Age: 52 Year
  Sex: Female
  Weight: 51.3 kg

DRUGS (1)
  1. PREMPRO (CONJUGATED ESTROGENS/MEDROXYPROGESTGERONE ACETATE, TABLET) [Suspect]
     Indication: HORMONE THERAPY
     Dosage: ORAL
     Route: 048
     Dates: start: 20050601

REACTIONS (1)
  - BLADDER CANCER [None]
